FAERS Safety Report 5506211-6 (Version None)
Quarter: 2007Q4

REPORT INFORMATION
  Report Type: 
  Country: None (occurrence: None)
  Receive Date: 20071105
  Receipt Date: 20071031
  Transmission Date: 20080405
  Serious: Yes (Other)
  Sender: FDA-Public Use
  Company Number: DE-BAYER-200711200BVD

PATIENT
  Sex: Male
  Weight: 80 kg

DRUGS (2)
  1. SORAFENIB [Suspect]
     Indication: HEPATIC NEOPLASM MALIGNANT
     Dosage: UNIT DOSE: 400 MG
     Route: 048
     Dates: start: 20070713
  2. SORAFENIB [Suspect]
     Route: 048
     Dates: start: 20070802, end: 20070816

REACTIONS (4)
  - DIZZINESS [None]
  - DYSPNOEA [None]
  - GENERAL PHYSICAL HEALTH DETERIORATION [None]
  - NAUSEA [None]
